FAERS Safety Report 13782411 (Version 2)
Quarter: 2017Q3

REPORT INFORMATION
  Report Type: Spontaneous
  Country: US (occurrence: US)
  Receive Date: 20170724
  Receipt Date: 20170725
  Transmission Date: 20171127
  Serious: Yes (Other)
  Sender: FDA-Public Use
  Company Number: US-BAYER-2017-140803

PATIENT
  Sex: Female

DRUGS (1)
  1. MIRENA [Suspect]
     Active Substance: LEVONORGESTREL
     Indication: POLYCYSTIC OVARIES
     Dosage: 20 MCG/24HR, CONT
     Route: 015

REACTIONS (4)
  - Off label use [None]
  - Genital haemorrhage [Not Recovered/Not Resolved]
  - Adverse drug reaction [None]
  - Device use issue [None]

NARRATIVE: CASE EVENT DATE: 201704
